FAERS Safety Report 11088281 (Version 2)
Quarter: 2015Q2

REPORT INFORMATION
  Report Type: Spontaneous
  Country: JP (occurrence: JP)
  Receive Date: 20150504
  Receipt Date: 20150630
  Transmission Date: 20150821
  Serious: Yes (Hospitalization, Other)
  Sender: FDA-Public Use
  Company Number: JP-PFIZER INC-2015057465

PATIENT
  Sex: Male

DRUGS (1)
  1. SUTENT [Suspect]
     Active Substance: SUNITINIB MALATE
     Indication: NEOPLASM MALIGNANT
     Dosage: 25 MG, CYCLIC (DAILY, 1 WEEK ON/1 WEEK OFF)
     Route: 048

REACTIONS (8)
  - Diarrhoea [Recovered/Resolved]
  - Haemoglobin decreased [Recovered/Resolved]
  - Hyperaemia [Recovered/Resolved]
  - Haemorrhage [Recovered/Resolved]
  - Disease progression [Recovered/Resolved]
  - Blood creatinine increased [Recovered/Resolved]
  - Neoplasm malignant [Recovered/Resolved]
  - Colitis [Recovered/Resolved]

NARRATIVE: CASE EVENT DATE: 2015
